FAERS Safety Report 24686512 (Version 2)
Quarter: 2024Q4

REPORT INFORMATION
  Report Type: Spontaneous
  Country: NL (occurrence: NL)
  Receive Date: 20241202
  Receipt Date: 20241219
  Transmission Date: 20250115
  Serious: Yes (Death, Life-Threatening, Hospitalization, Other)
  Sender: MSN LABORATORIES PRIVATE LIMITED
  Company Number: NL-MSNLABS-2024MSNLIT02594

PATIENT

DRUGS (4)
  1. CAPECITABINE [Suspect]
     Active Substance: CAPECITABINE
     Indication: Gastric cancer
     Route: 065
  2. CAPECITABINE [Suspect]
     Active Substance: CAPECITABINE
     Dosage: DOSE REDUCED TO 50% (500MG/M2 TWICE DAILY).
     Route: 065
  3. OXALIPLATIN [Suspect]
     Active Substance: OXALIPLATIN
     Indication: Gastric cancer
     Route: 065
  4. TRASTUZUMAB [Suspect]
     Active Substance: TRASTUZUMAB
     Indication: Gastric cancer
     Route: 065

REACTIONS (7)
  - Leukoencephalopathy [Fatal]
  - Mucosal inflammation [Recovered/Resolved]
  - Toxicity to various agents [Unknown]
  - Neutropenic colitis [Recovered/Resolved]
  - Pancytopenia [Recovered/Resolved]
  - Renal vein thrombosis [Unknown]
  - Diarrhoea [Unknown]
